FAERS Safety Report 7973724-7 (Version None)
Quarter: 2011Q4

REPORT INFORMATION
  Report Type: 
  Country: None (occurrence: None)
  Receive Date: 20111213
  Receipt Date: 20111213
  Transmission Date: 20120403
  Serious: Yes (Hospitalization)
  Sender: FDA-Public Use
  Company Number: None

PATIENT
  Age: 90 Year
  Sex: Female

DRUGS (9)
  1. SOTALOL HCL [Suspect]
     Dosage: 80 MG
     Route: 048
  2. ZOCOR [Concomitant]
     Route: 048
  3. ACETAMINOPHEN [Concomitant]
     Route: 048
  4. COUMADIN [Concomitant]
     Route: 048
  5. CARDIZEM [Concomitant]
     Route: 048
  6. NORVASC [Concomitant]
     Route: 048
  7. NITROGLYCERIN PATCH -NITRO-DUR [Concomitant]
     Route: 062
  8. VASOTEC [Concomitant]
     Route: 048
  9. OMEPRAZOLE -PRILOSEC [Concomitant]
     Route: 048

REACTIONS (3)
  - BRADYCARDIA [None]
  - RENAL FAILURE ACUTE [None]
  - TOXICITY TO VARIOUS AGENTS [None]
